FAERS Safety Report 7748129-4 (Version None)
Quarter: 2011Q3

REPORT INFORMATION
  Report Type: 
  Country: None (occurrence: None)
  Receive Date: 20110909
  Receipt Date: 20110906
  Transmission Date: 20111222
  Serious: Yes (Life-Threatening, Hospitalization)
  Sender: FDA-Public Use
  Company Number: 2011GW0906

PATIENT
  Sex: Female

DRUGS (1)
  1. LOPERAMIDE [Suspect]
     Indication: DIARRHOEA
     Dosage: 1 TAB PO ONCE
     Route: 048

REACTIONS (3)
  - THROAT TIGHTNESS [None]
  - DRUG HYPERSENSITIVITY [None]
  - DYSPNOEA [None]
